FAERS Safety Report 9514306 (Version 3)
Quarter: 2013Q4

REPORT INFORMATION
  Report Type: Report from Study
  Country: US (occurrence: US)
  Receive Date: 20130911
  Receipt Date: 20131105
  Transmission Date: 20140711
  Serious: Yes (Other)
  Sender: FDA-Public Use
  Company Number: US-ROCHE-1271695

PATIENT
  Age: 52 Year
  Sex: Female

DRUGS (5)
  1. HERCEPTIN [Suspect]
     Indication: BREAST CANCER METASTATIC
     Dosage: 1L DOSE
     Route: 065
  2. HERCEPTIN [Suspect]
     Dosage: 2L DOSE
     Route: 065
  3. KADCYLA [Suspect]
     Indication: BREAST CANCER METASTATIC
     Route: 065
  4. TAXOTERE [Suspect]
     Indication: PRODUCT USED FOR UNKNOWN INDICATION
     Dosage: 2L
     Route: 065
  5. FEMARA [Concomitant]
     Dosage: 1L
     Route: 065

REACTIONS (4)
  - Febrile neutropenia [Unknown]
  - Disease progression [Unknown]
  - Drug dose omission [Unknown]
  - Febrile neutropenia [Unknown]
